FAERS Safety Report 9951636 (Version 1)
Quarter: 2014Q1

REPORT INFORMATION
  Report Type: Report from Study
  Country: US (occurrence: US)
  Receive Date: 20140304
  Receipt Date: 20140304
  Transmission Date: 20141002
  Serious: No
  Sender: FDA-Public Use
  Company Number: US-ABBVIE-13P-163-1071130-00

PATIENT
  Age: 57 Year
  Sex: Female

DRUGS (9)
  1. HUMIRA [Suspect]
     Indication: RHEUMATOID ARTHRITIS
  2. ARAVA [Suspect]
     Indication: PRODUCT USED FOR UNKNOWN INDICATION
  3. FOLIC ACID [Concomitant]
     Indication: RHEUMATOID ARTHRITIS
  4. VICODIN [Concomitant]
     Indication: PAIN
  5. METHADONE [Concomitant]
     Indication: PRODUCT USED FOR UNKNOWN INDICATION
     Route: 048
  6. CYMBALTA [Concomitant]
     Indication: SCIATICA
     Dosage: DAILY
     Route: 048
  7. PREDNISONE [Concomitant]
     Indication: RHEUMATOID ARTHRITIS
     Dosage: DAILY
     Route: 048
  8. NORVASC [Concomitant]
     Indication: HYPERTENSION
     Dosage: DAILY
     Route: 048
  9. ENALAPRIL [Concomitant]
     Indication: HYPERTENSION
     Dosage: DAILY
     Route: 048

REACTIONS (2)
  - Alopecia [Unknown]
  - Drug ineffective [Unknown]
